FAERS Safety Report 20410276 (Version 1)
Quarter: 2022Q1

REPORT INFORMATION
  Report Type: Spontaneous
  Country: US (occurrence: None)
  Receive Date: 20220131
  Receipt Date: 20220131
  Transmission Date: 20220424
  Serious: No
  Sender: FDA-Public Use
  Company Number: None

PATIENT
  Age: 57 Year
  Sex: Female
  Weight: 110.2 kg

DRUGS (1)
  1. DAPTOMYCIN [Suspect]
     Active Substance: DAPTOMYCIN
     Indication: Bacteraemia
     Dosage: FREQUENCY : DAILY;?
     Route: 042
     Dates: start: 20220125, end: 20220126

REACTIONS (1)
  - Rash [None]

NARRATIVE: CASE EVENT DATE: 20220125
